FAERS Safety Report 6583054-6 (Version None)
Quarter: 2010Q1

REPORT INFORMATION
  Report Type: 
  Country: None (occurrence: None)
  Receive Date: 20100216
  Receipt Date: 20100208
  Transmission Date: 20100710
  Serious: Yes (Hospitalization, Other)
  Sender: FDA-Public Use
  Company Number: MA-ROCHE-671901

PATIENT
  Sex: Female
  Weight: 61 kg

DRUGS (1)
  1. PEG-INTERFERON ALFA 2A (RO 25-8310) [Suspect]
     Dosage: LAST DOSE PRIOR TO SAE: 01 FEBRUARY 2010.
     Route: 058
     Dates: start: 20090831, end: 20100206

REACTIONS (4)
  - ANAEMIA [None]
  - ASTHENIA [None]
  - CELL DEATH [None]
  - JAUNDICE [None]
